FAERS Safety Report 7772318-6 (Version None)
Quarter: 2011Q3

REPORT INFORMATION
  Report Type: 
  Country: None (occurrence: None)
  Receive Date: 20110922
  Receipt Date: 20100105
  Transmission Date: 20111222
  Serious: No
  Sender: FDA-Public Use
  Company Number: US-ASTRAZENECA-2009SE19299

PATIENT
  Sex: Male
  Weight: 99.8 kg

DRUGS (11)
  1. BUPROPION XL/WELBUTRINE [Concomitant]
     Dates: start: 20090101
  2. AVANDAMET [Concomitant]
     Dosage: 2/500 MG
     Dates: start: 20080111
  3. VIAGRA [Concomitant]
     Dates: start: 20080204
  4. SEROQUEL [Suspect]
     Indication: SLEEP DISORDER
     Dosage: 100-200 MG
     Route: 048
     Dates: start: 20080211, end: 20090814
  5. SEROQUEL [Suspect]
     Indication: ANXIETY
     Dosage: 100-200 MG
     Route: 048
     Dates: start: 20080211, end: 20090814
  6. AVODART [Concomitant]
     Dates: start: 20080303
  7. ABILIFY [Concomitant]
     Dates: start: 20070119
  8. BUPROPION XL/WELBUTRINE [Concomitant]
     Dates: start: 20080303
  9. SEROQUEL [Suspect]
     Indication: DEPRESSION
     Dosage: 100-200 MG
     Route: 048
     Dates: start: 20080211, end: 20090814
  10. LEVITRA [Concomitant]
     Dates: start: 20080204
  11. CIALIS [Concomitant]
     Dates: start: 20080303

REACTIONS (2)
  - DIABETES MELLITUS [None]
  - OBESITY [None]
